FAERS Safety Report 20573185 (Version 3)
Quarter: 2022Q2

REPORT INFORMATION
  Report Type: Report from Study
  Country: DE (occurrence: DE)
  Receive Date: 20220309
  Receipt Date: 20220505
  Transmission Date: 20220720
  Serious: Yes (Hospitalization, Other)
  Sender: FDA-Public Use
  Company Number: DE-NOVARTISPH-NVSC2022DE054380

PATIENT
  Age: 73 Year
  Sex: Female
  Weight: 72 kg

DRUGS (7)
  1. CAPMATINIB [Suspect]
     Active Substance: CAPMATINIB
     Indication: Lung cancer metastatic
     Dosage: 200 MG (2-0-2)
     Route: 065
     Dates: start: 20211020
  2. CAPMATINIB [Suspect]
     Active Substance: CAPMATINIB
     Dosage: 600 MG (ROUTE: 300-0-300)
     Route: 065
     Dates: start: 20211020
  3. CAPMATINIB [Suspect]
     Active Substance: CAPMATINIB
     Dosage: 800 MG (ROUTE: 400-0-400)
     Route: 065
     Dates: start: 20211020, end: 20220109
  4. CAPMATINIB [Suspect]
     Active Substance: CAPMATINIB
     Dosage: 300 MG, BID (1-0-1)
     Route: 065
     Dates: start: 20220201
  5. CAPMATINIB [Suspect]
     Active Substance: CAPMATINIB
     Dosage: 600 MG, QD
     Route: 065
     Dates: start: 20220201, end: 20220301
  6. CAPMATINIB [Suspect]
     Active Substance: CAPMATINIB
     Dosage: 200 MG, BID (1-0-1)
     Route: 065
     Dates: start: 20220330
  7. CAPMATINIB [Suspect]
     Active Substance: CAPMATINIB
     Dosage: UNK
     Route: 065
     Dates: start: 20211020, end: 20220301

REACTIONS (7)
  - Arrhythmia [Recovering/Resolving]
  - Extrasystoles [Recovered/Resolved with Sequelae]
  - Electrocardiogram QT prolonged [Not Recovered/Not Resolved]
  - Abdominal pain [Recovered/Resolved]
  - Vomiting [Recovered/Resolved]
  - Electrocardiogram abnormal [Recovered/Resolved with Sequelae]
  - Oedema peripheral [Recovered/Resolved with Sequelae]

NARRATIVE: CASE EVENT DATE: 20220110
